FAERS Safety Report 4704151-3 (Version None)
Quarter: 2005Q2

REPORT INFORMATION
  Report Type: 
  Country: None (occurrence: None)
  Receive Date: 20050629
  Receipt Date: 20050617
  Transmission Date: 20051028
  Serious: Yes (Hospitalization)
  Sender: FDA-Public Use
  Company Number: HQWYE524517JUN05

PATIENT
  Age: 52 Year
  Sex: Female

DRUGS (4)
  1. CORDARONE [Suspect]
     Indication: ATRIAL FIBRILLATION
     Dosage: 200 MG 1X PER 1 DAY, ORAL
     Route: 048
     Dates: start: 20010101
  2. LISINOPRIL/HYDROCHLOROTHIAIZDE (LISIONOPRIL/HYDROCHLOROTHIAZIDE) [Concomitant]
  3. SIMVASTATIN [Concomitant]
  4. AMLODIPINE [Concomitant]

REACTIONS (8)
  - ASTHENIA [None]
  - ATRIAL FIBRILLATION [None]
  - CONSTIPATION [None]
  - DRUG EFFECT DECREASED [None]
  - DRY SKIN [None]
  - FATIGUE [None]
  - HEADACHE [None]
  - SELF-MEDICATION [None]
